FAERS Safety Report 8615373-3 (Version None)
Quarter: 2012Q3

REPORT INFORMATION
  Report Type: 
  Country: None (occurrence: None)
  Receive Date: 20120816
  Receipt Date: 20120816
  Transmission Date: 20120928
  Serious: Yes (Life-Threatening)
  Sender: FDA-Public Use
  Company Number: None

PATIENT
  Age: 63 Year
  Sex: Male
  Weight: 250.3856 kg

DRUGS (18)
  1. ASPIRIN [Concomitant]
  2. FERROUS SULFATE TAB [Concomitant]
  3. FAMOTIDINE [Concomitant]
  4. ENOXAPARIN SODIUM [Suspect]
     Indication: CARDIOVASCULAR EVENT PROPHYLAXIS
     Dosage: 40MG ONCE DAILY SQ
     Route: 058
  5. SIMVASTATIN [Concomitant]
  6. ISOSORBIDE MONONITRATE [Concomitant]
  7. BUDESONIDE [Concomitant]
  8. ENALAPRIL MALEATE [Concomitant]
  9. INSULIN [Concomitant]
  10. IPRATROPIUM BROMIDE AND ALBUTEROL SULFATE [Concomitant]
  11. AMLODIPINE [Concomitant]
  12. PREDNISONE TAB [Concomitant]
  13. MONTELUKAST [Concomitant]
  14. CLOPIDOGREL [Suspect]
     Indication: CARDIOVASCULAR EVENT PROPHYLAXIS
     Dosage: 75MG ONCE DAILY PO
     Route: 048
  15. FLUTICASONE PROPIONATE/SALMETEROL [Concomitant]
  16. HYDRALAZINE HCL [Concomitant]
  17. PIPERACILLIN AND TAZOBACTAM [Concomitant]
  18. VANCOMYCIN [Concomitant]

REACTIONS (2)
  - HAEMORRHOIDS [None]
  - HAEMOGLOBIN DECREASED [None]
